FAERS Safety Report 17613222 (Version 4)
Quarter: 2020Q2

REPORT INFORMATION
  Report Type: Spontaneous
  Country: US (occurrence: US)
  Receive Date: 20200402
  Receipt Date: 20200529
  Transmission Date: 20200713
  Serious: No
  Sender: FDA-Public Use
  Company Number: US-JNJFOC-20200341897

PATIENT

DRUGS (1)
  1. MENS ROGAINE EXTRA STRENGTH [Suspect]
     Active Substance: MINOXIDIL
     Indication: ALOPECIA
     Route: 061
     Dates: start: 202003

REACTIONS (4)
  - Alopecia [Recovered/Resolved]
  - Suspected counterfeit product [Unknown]
  - Product odour abnormal [Unknown]
  - Product formulation issue [Unknown]

NARRATIVE: CASE EVENT DATE: 202003
